FAERS Safety Report 10675949 (Version 2)
Quarter: 2015Q1

REPORT INFORMATION
  Report Type: Report from Study
  Country: NL (occurrence: NL)
  Receive Date: 20141225
  Receipt Date: 20150119
  Transmission Date: 20150720
  Serious: Yes (Death, Hospitalization)
  Sender: FDA-Public Use
  Company Number: NL-ABBVIE-14P-114-1326020-00

PATIENT
  Age: 82 Year
  Sex: Male

DRUGS (7)
  1. OMEPRAZOL [Concomitant]
     Active Substance: OMEPRAZOLE
     Indication: GASTRIC DISORDER
  2. LUCRIN [Suspect]
     Active Substance: LEUPROLIDE ACETATE
     Indication: PROSTATE CANCER
     Route: 058
     Dates: start: 20080724, end: 20140715
  3. IRBESARTAN. [Concomitant]
     Active Substance: IRBESARTAN
     Indication: BLOOD PRESSURE
  4. BUMETANIDE. [Concomitant]
     Active Substance: BUMETANIDE
     Indication: BLOOD PRESSURE
  5. BUMETANIDE. [Concomitant]
     Active Substance: BUMETANIDE
     Indication: CARDIOVASCULAR DISORDER
  6. SIMVASTATINE [Concomitant]
     Active Substance: SIMVASTATIN
     Indication: BLOOD CHOLESTEROL
     Dosage: 1 TABLET
     Route: 065
  7. ACETYLSALICYLIC ACID [Concomitant]
     Active Substance: ASPIRIN
     Indication: CARDIOVASCULAR DISORDER

REACTIONS (3)
  - Renal impairment [Recovered/Resolved]
  - Death [Fatal]
  - Urinary retention [Recovered/Resolved]

NARRATIVE: CASE EVENT DATE: 20141015
